FAERS Safety Report 9033591 (Version 1)
Quarter: 2013Q1

REPORT INFORMATION
  Report Type: Spontaneous
  Country: US (occurrence: US)
  Receive Date: 20130128
  Receipt Date: 20130128
  Transmission Date: 20140127
  Serious: Yes (Death, Hospitalization, Other)
  Sender: FDA-Public Use
  Company Number: US-AMGEN-USASP2013005660

PATIENT
  Age: 75 Year
  Sex: Female

DRUGS (1)
  1. ENBREL [Suspect]
     Indication: PSORIASIS
     Dosage: 25 MG, 2 TIMES/WK
     Dates: start: 2002, end: 201210

REACTIONS (4)
  - Non-Hodgkin^s lymphoma [Fatal]
  - Mental status changes [Recovered/Resolved]
  - Hallucination [Recovered/Resolved]
  - Psoriasis [Recovered/Resolved]
